FAERS Safety Report 14582364 (Version 1)
Quarter: 2018Q1

REPORT INFORMATION
  Report Type: Spontaneous
  Country: US (occurrence: US)
  Receive Date: 20180228
  Receipt Date: 20180228
  Transmission Date: 20180509
  Serious: Yes (Death)
  Sender: FDA-Public Use
  Company Number: US-FRI-1000067401

PATIENT
  Age: 89 Year
  Sex: Female

DRUGS (1)
  1. TEFLARO [Suspect]
     Active Substance: CEFTAROLINE FOSAMIL
     Indication: OSTEOMYELITIS BACTERIAL
     Dosage: 600 MG, Q12H
     Route: 042

REACTIONS (6)
  - Off label use [Recovered/Resolved]
  - Nausea [Unknown]
  - Mental status changes [Unknown]
  - Death [Fatal]
  - Fatigue [Unknown]
  - Anaemia [Recovered/Resolved]
